FAERS Safety Report 24695698 (Version 1)
Quarter: 2024Q4

REPORT INFORMATION
  Report Type: Spontaneous
  Country: CZ (occurrence: CZ)
  Receive Date: 20241204
  Receipt Date: 20241204
  Transmission Date: 20250115
  Serious: Yes (Life-Threatening, Other)
  Sender: ROCHE
  Company Number: None

PATIENT
  Age: 79 Year
  Sex: Female
  Weight: 72 kg

DRUGS (9)
  1. HERCEPTIN [Suspect]
     Active Substance: TRASTUZUMAB
     Indication: Breast cancer
     Dosage: GIVEN 14 CYCLES EVERY 3 WEEKS
     Route: 058
     Dates: start: 20210415, end: 20220407
  2. LETROZOLE [Suspect]
     Active Substance: LETROZOLE
     Indication: Breast cancer
     Dosage: DOSAGE 2.5 MG ONCE A DAY, ADMINISTERED UNTIL NOW, UNINTERRUPTED
     Route: 048
     Dates: start: 20210416
  3. ATORVASTATIN CALCIUM [Concomitant]
     Active Substance: ATORVASTATIN CALCIUM
     Dosage: 1-0-0
  4. ASPIRIN\GLYCINE [Concomitant]
     Active Substance: ASPIRIN\GLYCINE
     Dosage: 100/50MG?0-1-0
  5. Detralex 500mg [Concomitant]
     Dosage: 2-0-0
  6. IMURAN [Concomitant]
     Active Substance: AZATHIOPRINE
     Dosage: ONCE A WEEK
  7. AVOCADO OIL\SOYBEAN OIL [Concomitant]
     Active Substance: AVOCADO OIL\SOYBEAN OIL
     Dosage: TWO TIMES A YEAR
  8. JARDIANCE [Concomitant]
     Active Substance: EMPAGLIFLOZIN
     Dosage: 1-0-0
  9. CALCIUM CARBONATE\CHOLECALCIFEROL [Concomitant]
     Active Substance: CALCIUM CARBONATE\CHOLECALCIFEROL
     Dosage: 500 MG/ 1000 IU1-0-0

REACTIONS (6)
  - Heart failure with reduced ejection fraction [Unknown]
  - Dyspnoea exertional [Unknown]
  - Palpitations [Unknown]
  - Oedema peripheral [Unknown]
  - Myocardial ischaemia [Unknown]
  - Myocardial infarction [Recovered/Resolved with Sequelae]

NARRATIVE: CASE EVENT DATE: 20220301
